FAERS Safety Report 20741156 (Version 1)
Quarter: 2022Q2

REPORT INFORMATION
  Report Type: Spontaneous
  Country: US (occurrence: US)
  Receive Date: 20220422
  Receipt Date: 20220422
  Transmission Date: 20220721
  Serious: No
  Sender: FDA-Public Use
  Company Number: US-PFIZER INC-202200229092

PATIENT
  Age: 66 Year

DRUGS (4)
  1. CELECOXIB [Suspect]
     Active Substance: CELECOXIB
     Dosage: 200 MG
  2. METHOTREXATE SODIUM [Suspect]
     Active Substance: METHOTREXATE SODIUM
     Indication: Inflammatory pain
     Dosage: 2.5 MG
  3. HYDROXYCHLOROQUINE [Suspect]
     Active Substance: HYDROXYCHLOROQUINE
     Indication: Inflammatory pain
     Dosage: 200 MG
  4. NAPROXEN [Suspect]
     Active Substance: NAPROXEN
     Indication: Inflammatory pain
     Dosage: 500 MG

REACTIONS (1)
  - Drug ineffective [Unknown]
